FAERS Safety Report 20930849 (Version 2)
Quarter: 2022Q2

REPORT INFORMATION
  Report Type: Spontaneous
  Country: US (occurrence: US)
  Receive Date: 20220608
  Receipt Date: 20220622
  Transmission Date: 20220720
  Serious: Yes (Other)
  Sender: FDA-Public Use
  Company Number: US-BAYER-2022A079085

PATIENT
  Age: 29 Year
  Sex: Male

DRUGS (2)
  1. JIVI [Suspect]
     Active Substance: DAMOCTOCOG ALFA PEGOL
     Dosage: 4962 IU
  2. JIVI [Suspect]
     Active Substance: DAMOCTOCOG ALFA PEGOL
     Dosage: 1 DF, FOR TREATMENT OF SPLITTING LEFT INDEX FINGER

REACTIONS (2)
  - Traumatic haemorrhage [Recovered/Resolved]
  - Hand fracture [None]

NARRATIVE: CASE EVENT DATE: 20220518
